FAERS Safety Report 10093655 (Version 1)
Quarter: 2014Q2

REPORT INFORMATION
  Report Type: Spontaneous
  Country: US (occurrence: US)
  Receive Date: 20140421
  Receipt Date: 20140421
  Transmission Date: 20141212
  Serious: No
  Sender: FDA-Public Use
  Company Number: US-SANOFI-AVENTIS-2013SA079720

PATIENT
  Age: 7 Week
  Sex: Female

DRUGS (2)
  1. ALLEGRA [Suspect]
     Route: 065
  2. ALLEGRA [Suspect]
     Route: 065
     Dates: end: 20130804

REACTIONS (4)
  - Multiple allergies [Not Recovered/Not Resolved]
  - Exposure during breast feeding [Unknown]
  - Salivary hypersecretion [Not Recovered/Not Resolved]
  - Exposure during pregnancy [Unknown]
